FAERS Safety Report 18665329 (Version 1)
Quarter: 2020Q4

REPORT INFORMATION
  Report Type: Spontaneous
  Country: JP (occurrence: JP)
  Receive Date: 20201225
  Receipt Date: 20201225
  Transmission Date: 20210114
  Serious: Yes (Hospitalization)
  Sender: FDA-Public Use
  Company Number: JP-ASTRAZENECA-2020SF73570

PATIENT
  Age: 52 Year
  Sex: Female

DRUGS (8)
  1. FLUTIFORM [Concomitant]
     Active Substance: FLUTICASONE PROPIONATE\FORMOTEROL FUMARATE
  2. FASENRA [Concomitant]
     Active Substance: BENRALIZUMAB
     Indication: ASTHMA
     Route: 058
  3. SPIRIVA [Concomitant]
     Active Substance: TIOTROPIUM BROMIDE MONOHYDRATE
  4. SYMBICORT [Suspect]
     Active Substance: BUDESONIDE\FORMOTEROL FUMARATE DIHYDRATE
     Indication: ASTHMA
     Dosage: 30 DOSES,UNKNOWN UNKNOWN
     Route: 055
  5. IPD [Concomitant]
     Active Substance: SUPLATAST TOSILATE
  6. MONTELUKAST [Concomitant]
     Active Substance: MONTELUKAST SODIUM
  7. PREDONINE [Concomitant]
     Active Substance: PREDNISOLONE
     Indication: ASTHMA
     Route: 048
  8. FEXOFENADINE HYDROCHLORIDE. [Concomitant]
     Active Substance: FEXOFENADINE HYDROCHLORIDE

REACTIONS (4)
  - Pneumonia [Unknown]
  - Asthma [Unknown]
  - Cough [Unknown]
  - Device difficult to use [Unknown]
